FAERS Safety Report 9985610 (Version 1)
Quarter: 2014Q1

REPORT INFORMATION
  Report Type: Spontaneous
  Country: US (occurrence: US)
  Receive Date: 20140307
  Receipt Date: 20140307
  Transmission Date: 20141002
  Serious: Yes (Other)
  Sender: FDA-Public Use
  Company Number: CHPA2014US003443

PATIENT
  Age: 36 Year
  Sex: Female

DRUGS (2)
  1. TRANSDERM SCOP [Suspect]
     Indication: PROCEDURAL NAUSEA
     Dosage: 1 DF, Q72H
     Route: 062
     Dates: start: 20140224, end: 20140227
  2. TRANSDERM SCOP [Suspect]
     Indication: OFF LABEL USE
     Dosage: 1 DF, Q72H
     Route: 062
     Dates: start: 20140118

REACTIONS (6)
  - Gastrooesophageal reflux disease [Not Recovered/Not Resolved]
  - Application site dryness [Recovering/Resolving]
  - Application site pruritus [Recovered/Resolved]
  - Application site rash [Recovering/Resolving]
  - Application site erythema [Recovering/Resolving]
  - Vision blurred [Recovered/Resolved]
